FAERS Safety Report 8239679-5 (Version None)
Quarter: 2012Q1

REPORT INFORMATION
  Report Type: 
  Country: None (occurrence: None)
  Receive Date: 20120328
  Receipt Date: 20120320
  Transmission Date: 20120608
  Serious: Yes (Other)
  Sender: FDA-Public Use
  Company Number: US-US-EMD SERONO, INC.-7120986

PATIENT
  Sex: Male

DRUGS (1)
  1. REBIF [Suspect]
     Indication: MULTIPLE SCLEROSIS
     Route: 058
     Dates: start: 20110720

REACTIONS (4)
  - MULTIPLE SCLEROSIS RELAPSE [None]
  - POLYCYTHAEMIA [None]
  - VOMITING [None]
  - INJECTION SITE HAEMATOMA [None]
